FAERS Safety Report 18036335 (Version 1)
Quarter: 2020Q3

REPORT INFORMATION
  Report Type: Spontaneous
  Country: US (occurrence: US)
  Receive Date: 20200717
  Receipt Date: 20200717
  Transmission Date: 20201103
  Serious: Yes (Other)
  Sender: FDA-Public Use
  Company Number: None

PATIENT
  Sex: Male

DRUGS (1)
  1. LORAZEPAM TABLETS 0.5 MG [Suspect]
     Active Substance: LORAZEPAM

REACTIONS (1)
  - Drug ineffective [None]
